FAERS Safety Report 7832982-X (Version None)
Quarter: 2011Q4

REPORT INFORMATION
  Report Type: 
  Country: None (occurrence: None)
  Receive Date: 20111024
  Receipt Date: 20111012
  Transmission Date: 20120403
  Serious: Yes (Hospitalization, Other)
  Sender: FDA-Public Use
  Company Number: JP-JNJFOC-20111006187

PATIENT
  Age: 36 Year
  Sex: Female

DRUGS (3)
  1. REMICADE [Suspect]
     Indication: CROHN'S DISEASE
     Route: 042
     Dates: start: 20100101
  2. 5-AMINOSALICYLIC ACID [Concomitant]
     Indication: CROHN'S DISEASE
     Route: 065
  3. ALL OTHER THERAPEUTIC PRODUCTS [Concomitant]
     Indication: CROHN'S DISEASE
     Route: 065

REACTIONS (1)
  - RECTAL OBSTRUCTION [None]
